FAERS Safety Report 7978474-9 (Version None)
Quarter: 2011Q4

REPORT INFORMATION
  Report Type: 
  Country: None (occurrence: None)
  Receive Date: 20111214
  Receipt Date: 20111130
  Transmission Date: 20120403
  Serious: Yes (Hospitalization)
  Sender: FDA-Public Use
  Company Number: DE-ELI_LILLY_AND_COMPANY-DE201111002649

PATIENT
  Age: 24 Year
  Sex: Male
  Weight: 77 kg

DRUGS (2)
  1. OLANZAPINE [Suspect]
     Dosage: 405 MG, EVERY 2 WEEKS
     Route: 030
     Dates: start: 20110410, end: 20110619
  2. OLANZAPINE [Suspect]
     Indication: SCHIZOPHRENIA
     Dosage: UNK UNK, UNKNOWN
     Route: 030
     Dates: start: 20110101, end: 20110410

REACTIONS (12)
  - RESPIRATORY TRACT INFECTION [None]
  - SINUS TACHYCARDIA [None]
  - GENERAL PHYSICAL HEALTH DETERIORATION [None]
  - SEDATION [None]
  - DELIRIUM [None]
  - C-REACTIVE PROTEIN INCREASED [None]
  - COORDINATION ABNORMAL [None]
  - INJECTION SITE ERYTHEMA [None]
  - DIZZINESS [None]
  - OVERDOSE [None]
  - RESTLESSNESS [None]
  - APHASIA [None]
